FAERS Safety Report 7768895 (Version 2)
Quarter: 2016Q1

REPORT INFORMATION
  Report Type: Spontaneous
  Country: US (occurrence: US)
  Receive Date: 20110121
  Receipt Date: 20160104
  Transmission Date: 20160526
  Serious: Yes (Hospitalization, Disabling, Other)
  Sender: FDA-Public Use
  Company Number: US-ELI_LILLY_AND_COMPANY-US201101002589

PATIENT
  Age: 55 Year
  Sex: Male

DRUGS (9)
  1. ZYPREXA [Suspect]
     Active Substance: OLANZAPINE
     Indication: SLEEP APNOEA SYNDROME
     Dosage: 30 MG, AT BEDTIME
     Route: 065
     Dates: start: 2003
  2. PROZAC [Concomitant]
     Active Substance: FLUOXETINE HYDROCHLORIDE
     Dosage: 60 MG, EACH MORNING
     Route: 065
  3. LITHIUM. [Concomitant]
     Active Substance: LITHIUM
     Dosage: 300 MG, EACH MORNING
     Route: 065
  4. LAMICTAL [Concomitant]
     Active Substance: LAMOTRIGINE
     Dosage: 25 MG, AT BEDTIME
     Route: 065
  5. LITHIUM. [Concomitant]
     Active Substance: LITHIUM
     Dosage: 300 MG, AT NOON
     Route: 065
  6. PROVIGIL [Concomitant]
     Active Substance: MODAFINIL
  7. LITHIUM. [Concomitant]
     Active Substance: LITHIUM
     Dosage: 300 MG, AT NIGHT
     Route: 065
  8. MIRAPEX [Concomitant]
     Active Substance: PRAMIPEXOLE DIHYDROCHLORIDE
  9. CLONAZEPAM. [Concomitant]
     Active Substance: CLONAZEPAM
     Dosage: 0.75 MG, BID
     Route: 048

REACTIONS (19)
  - Mental impairment [Recovering/Resolving]
  - Bipolar disorder [Recovering/Resolving]
  - Depression [Unknown]
  - Intentional overdose [Unknown]
  - Delayed sleep phase [Unknown]
  - Cognitive disorder [Unknown]
  - Somnolence [Unknown]
  - Post-traumatic stress disorder [Unknown]
  - Cardiomegaly [Unknown]
  - Blood urea increased [Unknown]
  - Nervous system disorder [Unknown]
  - Suicide attempt [Unknown]
  - Suicidal ideation [Unknown]
  - Metabolic syndrome [Unknown]
  - Adverse event [Unknown]
  - Weight increased [Unknown]
  - Pleural effusion [Unknown]
  - Off label use [Recovered/Resolved]
  - Mania [Recovered/Resolved]

NARRATIVE: CASE EVENT DATE: 200704
